FAERS Safety Report 17373835 (Version 1)
Quarter: 2020Q1

REPORT INFORMATION
  Report Type: Spontaneous
  Country: BE (occurrence: BE)
  Receive Date: 20200206
  Receipt Date: 20200206
  Transmission Date: 20200409
  Serious: Yes (Other)
  Sender: FDA-Public Use
  Company Number: BE-US-PROVELL PHARMACEUTICALS LLC-9143488

PATIENT
  Age: 43 Year
  Sex: Female

DRUGS (2)
  1. L-THYROXIN [Suspect]
     Active Substance: LEVOTHYROXINE SODIUM
     Dosage: FORM STRENGTH: 175 (UNIT UNSPECIFIED)
  2. L-THYROXIN [Suspect]
     Active Substance: LEVOTHYROXINE SODIUM
     Indication: HYPOTHYROIDISM
     Dosage: FORM STRENGTH:  25 (UNIT UNSPECIFIED)

REACTIONS (14)
  - Lymphatic disorder [Recovering/Resolving]
  - Drug ineffective [Recovered/Resolved]
  - Arthritis [Recovering/Resolving]
  - Anxiety [Recovering/Resolving]
  - Asthma [Recovering/Resolving]
  - Fatigue [Recovering/Resolving]
  - Dysphonia [Recovered/Resolved]
  - Cough [Recovered/Resolved]
  - Skin disorder [Recovering/Resolving]
  - Insomnia [Recovered/Resolved]
  - Alopecia [Recovering/Resolving]
  - Sensation of foreign body [Recovered/Resolved]
  - Throat tightness [Recovered/Resolved]
  - Weight increased [Recovering/Resolving]
